FAERS Safety Report 25284820 (Version 1)
Quarter: 2025Q2

REPORT INFORMATION
  Report Type: Spontaneous
  Country: GB (occurrence: GB)
  Receive Date: 20250508
  Receipt Date: 20250508
  Transmission Date: 20250716
  Serious: Yes (Other)
  Sender: MERCK SHARP & DOHME LLC
  Company Number: None

PATIENT
  Age: 47 Year
  Sex: Female

DRUGS (11)
  1. PEMBROLIZUMAB [Suspect]
     Active Substance: PEMBROLIZUMAB
     Indication: Breast cancer
     Route: 042
  2. DIMETHYL SULPHOXIDE [Concomitant]
  3. SODIUM CHLORIDE [Concomitant]
     Active Substance: SODIUM CHLORIDE
  4. CYCLOPHOSPHAMIDE [Concomitant]
     Active Substance: CYCLOPHOSPHAMIDE
  5. CARBOPLATIN [Concomitant]
     Active Substance: CARBOPLATIN
  6. METOCLOPRAMIDE [Concomitant]
     Active Substance: METOCLOPRAMIDE
  7. EPIRUBICIN [Concomitant]
     Active Substance: EPIRUBICIN
  8. PEGFILGRASTIM [Concomitant]
     Active Substance: PEGFILGRASTIM
  9. APREPITANT [Concomitant]
     Active Substance: APREPITANT
  10. DEXAMETHASONE [Concomitant]
     Active Substance: DEXAMETHASONE
  11. PACLITAXEL [Concomitant]
     Active Substance: PACLITAXEL

REACTIONS (3)
  - Musculoskeletal chest pain [Unknown]
  - Gingival erythema [Unknown]
  - Pyrexia [Unknown]

NARRATIVE: CASE EVENT DATE: 20250429
